FAERS Safety Report 4621544-3 (Version None)
Quarter: 2005Q1

REPORT INFORMATION
  Report Type: 
  Country: None (occurrence: None)
  Receive Date: 20050328
  Receipt Date: 20040203
  Transmission Date: 20050727
  Serious: No
  Sender: FDA-Public Use
  Company Number: 9891

PATIENT
  Age: 50 Year
  Sex: Male

DRUGS (2)
  1. METHOTREXATE [Suspect]
  2. ETANERCEPT [Suspect]
     Dosage: 25 MG FREQ
     Dates: start: 20001222, end: 20030301

REACTIONS (1)
  - ARTHRITIS BACTERIAL [None]
